FAERS Safety Report 9044258 (Version 1)
Quarter: 2013Q1

REPORT INFORMATION
  Report Type: Report from Study
  Country: US (occurrence: US)
  Receive Date: 20130131
  Receipt Date: 20130131
  Transmission Date: 20140127
  Serious: No
  Sender: FDA-Public Use
  Company Number: US-ABBOTT-12P-163-0985583-00

PATIENT
  Age: 50 Year
  Sex: Female

DRUGS (5)
  1. HUMIRA [Suspect]
     Indication: CROHN^S DISEASE
     Dosage: 4 PENS (160MG) ON DAY 1
     Route: 058
     Dates: start: 201208, end: 201208
  2. HUMIRA [Suspect]
     Dosage: 2 PENS (80MG) ON DAY 15
     Route: 058
  3. HUMIRA [Suspect]
     Route: 058
  4. PREDNISONE [Concomitant]
  5. ESTROGEN NOS [Concomitant]
     Indication: MENOPAUSE

REACTIONS (13)
  - Fatigue [Recovered/Resolved]
  - Fatigue [Recovered/Resolved]
  - Headache [Recovered/Resolved]
  - Nausea [Recovered/Resolved]
  - Vomiting [Recovered/Resolved]
  - Headache [Recovered/Resolved]
  - Nausea [Recovered/Resolved]
  - Vomiting [Recovered/Resolved]
  - Headache [Recovered/Resolved]
  - Nausea [Recovered/Resolved]
  - Vomiting [Recovered/Resolved]
  - Fatigue [Recovered/Resolved]
  - Abdominal pain upper [Recovered/Resolved]
